FAERS Safety Report 4337681-7 (Version None)
Quarter: 2004Q2

REPORT INFORMATION
  Report Type: 
  Country: None (occurrence: None)
  Receive Date: 20040408
  Receipt Date: 20040324
  Transmission Date: 20050107
  Serious: Yes (Hospitalization)
  Sender: FDA-Public Use
  Company Number: S04-GER-01086-01

PATIENT
  Age: 29 Year
  Sex: Female

DRUGS (4)
  1. CIPRAMIL (CITALOPRAM HYDROBROMIDE) [Suspect]
     Indication: DEPRESSION
     Dosage: 20 MG QD PO
     Route: 048
     Dates: start: 20020301, end: 20030220
  2. CIPRAMIL (CITALOPRAM HYDROBROMIDE) [Suspect]
     Indication: DEPRESSION
     Dosage: 20 MG QD PO
     Route: 048
     Dates: start: 20030515, end: 20030101
  3. CIPRAMIL (CITALOPRAM (HYDROBROMIDE) [Suspect]
     Indication: DEPRESSION
     Dosage: 40 MG QD PO
     Route: 048
     Dates: start: 20030101
  4. NORTRILEN ^PROMONTA LUNDBECK^ (NORTRIPTYLINE HYDROCHLORIDE) [Concomitant]

REACTIONS (6)
  - ABORTION SPONTANEOUS [None]
  - CAESAREAN SECTION [None]
  - COMPLICATIONS OF MATERNAL EXPOSURE TO THERAPEUTIC DRUGS [None]
  - DRUG EXPOSURE DURING PREGNANCY [None]
  - FOETAL MALPOSITION [None]
  - MATERNAL DRUGS AFFECTING FOETUS [None]
